FAERS Safety Report 25366752 (Version 1)
Quarter: 2025Q2

REPORT INFORMATION
  Report Type: Spontaneous
  Country: CH (occurrence: CH)
  Receive Date: 20250528
  Receipt Date: 20250528
  Transmission Date: 20250716
  Serious: Yes (Other)
  Sender: BAXTER
  Company Number: None

PATIENT
  Age: 3 Year
  Sex: Male

DRUGS (21)
  1. IFOSFAMIDE [Suspect]
     Active Substance: IFOSFAMIDE
     Dosage: 2100 MG, QD
     Route: 065
     Dates: start: 20250409, end: 20250410
  2. MESNA [Suspect]
     Active Substance: MESNA
     Route: 065
     Dates: start: 20250409, end: 20250409
  3. MESNA [Suspect]
     Active Substance: MESNA
     Route: 065
     Dates: start: 20250409, end: 20250409
  4. MESNA [Suspect]
     Active Substance: MESNA
     Route: 065
     Dates: start: 20250410, end: 20250410
  5. VINCRISTINE [Suspect]
     Active Substance: VINCRISTINE
     Route: 065
     Dates: start: 20250409, end: 20250409
  6. VINCRISTINE [Suspect]
     Active Substance: VINCRISTINE
     Route: 065
     Dates: start: 20250416, end: 20250416
  7. TRAMADOL [Suspect]
     Active Substance: TRAMADOL
     Route: 065
     Dates: start: 20250418, end: 20250422
  8. MORPHINE [Suspect]
     Active Substance: MORPHINE
     Dosage: 0.17 MG, 1X AN HOUR
     Route: 065
     Dates: start: 20250419, end: 20250422
  9. MIDAZOLAM [Concomitant]
     Active Substance: MIDAZOLAM
     Route: 042
     Dates: start: 20250417, end: 20250417
  10. PIPERACILLIN AND TAZOBACTAM [Concomitant]
     Active Substance: PIPERACILLIN SODIUM\TAZOBACTAM SODIUM
     Route: 065
     Dates: start: 20250419, end: 20250422
  11. CETIRIZINE [Concomitant]
     Active Substance: CETIRIZINE HYDROCHLORIDE
     Dosage: 2.5 MG, QD
     Route: 065
     Dates: start: 20250416, end: 20250425
  12. CHOLESTYRAMINE [Concomitant]
     Active Substance: CHOLESTYRAMINE
     Route: 065
     Dates: start: 20250417
  13. SULFAMETHOXAZOLE\TRIMETHOPRIM [Concomitant]
     Active Substance: SULFAMETHOXAZOLE\TRIMETHOPRIM
     Route: 065
     Dates: start: 20250409
  14. ONDANSETRON [Concomitant]
     Active Substance: ONDANSETRON
     Indication: Nausea
     Route: 065
  15. PALONOSETRON [Concomitant]
     Active Substance: PALONOSETRON
     Dosage: 178 UG, QD
     Route: 065
     Dates: start: 20250409, end: 20250411
  16. DACTINOMYCIN [Concomitant]
     Active Substance: DACTINOMYCIN
     Route: 065
     Dates: start: 20250409, end: 20250409
  17. HYDROXYZINE [Concomitant]
     Active Substance: HYDROXYZINE HYDROCHLORIDE
     Dosage: 8 MG, QD
     Route: 065
     Dates: start: 20250408, end: 20250412
  18. DEXAMETHASONE [Concomitant]
     Active Substance: DEXAMETHASONE
     Dosage: 5 MG, QD
     Route: 065
     Dates: start: 20250409, end: 20250411
  19. VITAMIN K [Concomitant]
     Active Substance: PHYTONADIONE
     Route: 065
     Dates: start: 20250417, end: 20250417
  20. URSODIOL [Concomitant]
     Active Substance: URSODIOL
     Route: 065
     Dates: start: 20250408
  21. ACETAMINOPHEN [Concomitant]
     Active Substance: ACETAMINOPHEN

REACTIONS (2)
  - Peroneal nerve palsy [Recovered/Resolved]
  - Intestinal obstruction [Recovering/Resolving]

NARRATIVE: CASE EVENT DATE: 20250427
